FAERS Safety Report 6237385-X (Version None)
Quarter: 2009Q2

REPORT INFORMATION
  Report Type: 
  Country: None (occurrence: None)
  Receive Date: 20090619
  Receipt Date: 20090610
  Transmission Date: 20091009
  Serious: Yes (Hospitalization, Other)
  Sender: FDA-Public Use
  Company Number: US-ABBOTT-09P-163-0579453-00

PATIENT
  Sex: Male
  Weight: 73.548 kg

DRUGS (1)
  1. HUMIRA [Suspect]
     Indication: PSORIATIC ARTHROPATHY
     Route: 058
     Dates: start: 20071101, end: 20090322

REACTIONS (4)
  - BLOODY DISCHARGE [None]
  - FALL [None]
  - HIP FRACTURE [None]
  - STAPHYLOCOCCAL INFECTION [None]
